FAERS Safety Report 12726571 (Version 1)
Quarter: 2016Q3

REPORT INFORMATION
  Report Type: Spontaneous
  Country: US (occurrence: US)
  Receive Date: 20160908
  Receipt Date: 20160908
  Transmission Date: 20161109
  Serious: No
  Sender: FDA-Public Use
  Company Number: US-GLAXOSMITHKLINE-US2016GSK131166

PATIENT
  Sex: Male

DRUGS (2)
  1. OXCARBAZEPINE. [Concomitant]
     Active Substance: OXCARBAZEPINE
  2. RANITIDINE HYDROCHLORIDE. [Suspect]
     Active Substance: RANITIDINE HYDROCHLORIDE
     Indication: FOOD ALLERGY
     Dosage: UNK

REACTIONS (1)
  - Drug ineffective for unapproved indication [Not Recovered/Not Resolved]
